FAERS Safety Report 7057859-1 (Version None)
Quarter: 2010Q4

REPORT INFORMATION
  Report Type: 
  Country: None (occurrence: None)
  Receive Date: 20101022
  Receipt Date: 20101014
  Transmission Date: 20110411
  Serious: Yes (Other)
  Sender: FDA-Public Use
  Company Number: US-PFIZER INC-2010119497

PATIENT
  Sex: Female

DRUGS (1)
  1. CHANTIX [Suspect]

REACTIONS (6)
  - AGITATION [None]
  - ANXIETY [None]
  - DEPRESSION [None]
  - MOOD SWINGS [None]
  - SPEECH DISORDER [None]
  - SUICIDAL IDEATION [None]
